FAERS Safety Report 19970636 (Version 1)
Quarter: 2021Q4

REPORT INFORMATION
  Report Type: Spontaneous
  Country: IT (occurrence: IT)
  Receive Date: 20211020
  Receipt Date: 20211020
  Transmission Date: 20220303
  Serious: Yes (Hospitalization, Other)
  Sender: FDA-Public Use
  Company Number: IT-LUPIN PHARMACEUTICALS INC.-2021-19766

PATIENT
  Age: 47 Year
  Sex: Female

DRUGS (1)
  1. ZOLPIDEM [Suspect]
     Active Substance: ZOLPIDEM TARTRATE
     Indication: Product used for unknown indication
     Dosage: UNK, QD (120-140 MG)
     Route: 048

REACTIONS (3)
  - Epilepsy [Recovered/Resolved]
  - Drug abuse [Unknown]
  - Withdrawal syndrome [Recovered/Resolved]
